FAERS Safety Report 14928133 (Version 2)
Quarter: 2018Q2

REPORT INFORMATION
  Report Type: Spontaneous
  Country: PL (occurrence: PL)
  Receive Date: 20180523
  Receipt Date: 20180625
  Transmission Date: 20180711
  Serious: Yes (Hospitalization)
  Sender: FDA-Public Use
  Company Number: PHHY2018PL032661

PATIENT
  Age: 17 Year
  Sex: Male

DRUGS (1)
  1. AMOXICILLIN + CLAVULANATE POTASSIUM [Suspect]
     Active Substance: AMOXICILLIN\CLAVULANATE POTASSIUM
     Indication: UPPER RESPIRATORY TRACT INFECTION BACTERIAL
     Route: 065

REACTIONS (16)
  - Inflammatory marker increased [Unknown]
  - Ultrasound scan abnormal [Recovered/Resolved]
  - Pharyngeal erythema [Unknown]
  - Drug ineffective [Unknown]
  - Coagulation factor increased [Unknown]
  - Coagulation time prolonged [Unknown]
  - Musculoskeletal chest pain [Recovered/Resolved]
  - Glucose tolerance impaired [Unknown]
  - Back pain [Unknown]
  - Inflammatory marker increased [Recovered/Resolved]
  - Activated partial thromboplastin time prolonged [Recovered/Resolved]
  - Abdominal pain [Recovered/Resolved]
  - Dry mouth [Unknown]
  - Prothrombin level increased [Recovered/Resolved]
  - Somnolence [Unknown]
  - Abdominal pain lower [Unknown]
